FAERS Safety Report 5601831-2 (Version None)
Quarter: 2008Q1

REPORT INFORMATION
  Report Type: 
  Country: None (occurrence: None)
  Receive Date: 20080124
  Receipt Date: 20080114
  Transmission Date: 20080703
  Serious: Yes (Other)
  Sender: FDA-Public Use
  Company Number: US-PFIZER INC-2008005119

PATIENT
  Sex: Male

DRUGS (1)
  1. LIPITOR [Suspect]

REACTIONS (3)
  - MUSCLE ATROPHY [None]
  - MYALGIA [None]
  - WEIGHT DECREASED [None]
